FAERS Safety Report 19356500 (Version 1)
Quarter: 2021Q2

REPORT INFORMATION
  Report Type: Spontaneous
  Country: US (occurrence: US)
  Receive Date: 20210601
  Receipt Date: 20210601
  Transmission Date: 20210717
  Serious: No
  Sender: FDA-Public Use
  Company Number: None

PATIENT
  Age: 61 Year
  Sex: Female
  Weight: 55.79 kg

DRUGS (3)
  1. RINVOQ [Suspect]
     Active Substance: UPADACITINIB
     Indication: DRUG THERAPY
     Dosage: AS DIRECTED
     Route: 048
     Dates: start: 202105
  2. RINVOQ [Suspect]
     Active Substance: UPADACITINIB
     Indication: RHEUMATOID ARTHRITIS
     Dosage: AS DIRECTED
     Route: 048
     Dates: start: 202105
  3. RINVOQ [Suspect]
     Active Substance: UPADACITINIB
     Indication: SENILE OSTEOPOROSIS
     Dosage: AS DIRECTED
     Route: 048
     Dates: start: 202105

REACTIONS (1)
  - Sinusitis [None]
